FAERS Safety Report 9526927 (Version 3)
Quarter: 2014Q3

REPORT INFORMATION
  Report Type: Report from Study
  Country: ES (occurrence: ES)
  Receive Date: 20130916
  Receipt Date: 20140822
  Transmission Date: 20150326
  Serious: Yes (Other)
  Sender: FDA-Public Use
  Company Number: ES-VERTEX PHARMACEUTICALS INC-2013-009601

PATIENT

DRUGS (3)
  1. PEGINTERFERON ALFA-2A [Suspect]
     Active Substance: PEGINTERFERON ALFA-2A
     Indication: CHRONIC HEPATITIS C
     Dosage: 180 ?G, QW
     Route: 065
  2. RIBAVIRIN. [Suspect]
     Active Substance: RIBAVIRIN
     Indication: CHRONIC HEPATITIS C
     Dosage: UNK
     Route: 065
  3. TELAPREVIR [Suspect]
     Active Substance: TELAPREVIR
     Indication: CHRONIC HEPATITIS C
     Dosage: 2250 MG, QD
     Route: 065

REACTIONS (19)
  - Insomnia [Unknown]
  - Liver disorder [Unknown]
  - Dysgeusia [Unknown]
  - Neutropenia [Unknown]
  - Vomiting [Unknown]
  - Anxiety [Unknown]
  - Pruritus [Unknown]
  - Depression [Unknown]
  - Nausea [Unknown]
  - Diarrhoea [Unknown]
  - Infection [Unknown]
  - Urinary tract infection [Unknown]
  - Skin lesion [Unknown]
  - Rash [Unknown]
  - Gastrointestinal disorder [Unknown]
  - Thrombocytopenia [Unknown]
  - Anaemia [Unknown]
  - Respiratory tract infection [Unknown]
  - Anorectal disorder [Unknown]
